FAERS Safety Report 19035958 (Version 1)
Quarter: 2021Q1

REPORT INFORMATION
  Report Type: Spontaneous
  Country: DE (occurrence: DE)
  Receive Date: 20210321
  Receipt Date: 20210321
  Transmission Date: 20210420
  Serious: Yes (Hospitalization, Other)
  Sender: FDA-Public Use
  Company Number: DE-TEVA-2021-DE-1891650

PATIENT
  Age: 77 Year
  Sex: Male

DRUGS (8)
  1. ALLOPURINOL. [Concomitant]
     Active Substance: ALLOPURINOL
     Dosage: 100 MILLIGRAM DAILY;  0?0?1?0,
  2. RAMIPRIL. [Concomitant]
     Active Substance: RAMIPRIL
     Dosage: 2.5 MILLIGRAM DAILY; 5 MG, 0.5?0?0?0
  3. ATORVASTATIN [Concomitant]
     Active Substance: ATORVASTATIN
     Dosage: 40 MILLIGRAM DAILY;  0?0?1?0,
  4. METOPROLOL. [Concomitant]
     Active Substance: METOPROLOL
     Dosage: UNIT DOSE 1.5 DOSAGE FORMS ,95 MG, 1?0?0.5?0,
  5. AMIODARON [Suspect]
     Active Substance: AMIODARONE
     Dosage: 200 MG, DISCONTINUED 082020,
     Dates: end: 202008
  6. TORASEMID [Concomitant]
     Active Substance: TORSEMIDE
     Dosage: 20 MILLIGRAM DAILY; 1?0?0?0,
  7. EDOXABAN [Concomitant]
     Active Substance: EDOXABAN TOSYLATE
     Dosage: 60 MILLIGRAM DAILY;  1?0?0?0
  8. METAMIZOL [Concomitant]
     Active Substance: METAMIZOLE SODIUM
     Dosage: UNIT DOSE 30 GTT ,30 GTT UP TO 4X, DROPS IF NECESSARY

REACTIONS (3)
  - Hypothyroidism [Unknown]
  - Condition aggravated [Unknown]
  - Dyspnoea exertional [Unknown]
